APPROVED DRUG PRODUCT: CLINDAMYCIN PHOSPHATE IN 5% DEXTROSE IN PLASTIC CONTAINER
Active Ingredient: CLINDAMYCIN PHOSPHATE
Strength: EQ 18MG BASE/ML
Dosage Form/Route: INJECTABLE;INJECTION
Application: A201692 | Product #003 | TE Code: AP
Applicant: SANDOZ INC
Approved: May 31, 2012 | RLD: No | RS: Yes | Type: RX